FAERS Safety Report 16864428 (Version 4)
Quarter: 2022Q3

REPORT INFORMATION
  Report Type: Other
  Country: CN (occurrence: None)
  Receive Date: 20190928
  Receipt Date: 20220905
  Transmission Date: 20221026
  Serious: Yes (Other)
  Sender: FDA-Public Use
  Company Number: CN-ROCHE-1956374

PATIENT
  Age: 53 Year
  Sex: Male
  Weight: 78 kg

DRUGS (2)
  1. AVASTIN [Suspect]
     Active Substance: BEVACIZUMAB
     Indication: Colorectal cancer
     Route: 041
     Dates: start: 20170223, end: 20190723
  2. AVASTIN [Suspect]
     Active Substance: BEVACIZUMAB
     Indication: Colon cancer
     Route: 041

REACTIONS (7)
  - Pulmonary mass [Unknown]
  - Diarrhoea [Unknown]
  - Fatigue [Unknown]
  - Nasopharyngitis [Unknown]
  - Cough [Unknown]
  - Therapeutic procedure [Unknown]
  - Lung neoplasm [Not Recovered/Not Resolved]

NARRATIVE: CASE EVENT DATE: 20210601
